FAERS Safety Report 4815355-3 (Version None)
Quarter: 2005Q4

REPORT INFORMATION
  Report Type: 
  Country: None (occurrence: None)
  Receive Date: 20051027
  Receipt Date: 20051018
  Transmission Date: 20060501
  Serious: Yes (Hospitalization, Other)
  Sender: FDA-Public Use
  Company Number: 163-20785-05040006

PATIENT
  Age: 81 Year
  Sex: Female

DRUGS (7)
  1. THALOMID [Suspect]
     Indication: MULTIPLE MYELOMA
     Dosage: SEE IMAGE
     Route: 048
     Dates: start: 20040202, end: 20040226
  2. THALOMID [Suspect]
     Indication: MULTIPLE MYELOMA
     Dosage: SEE IMAGE
     Route: 048
     Dates: start: 20040201, end: 20050201
  3. AREDIA [Concomitant]
  4. ATENOLOL [Concomitant]
  5. DIPYRIDAMOLE [Concomitant]
  6. LISINOPRIL [Concomitant]
  7. COMPAZINE [Concomitant]

REACTIONS (14)
  - ATROPHY [None]
  - AZOTAEMIA [None]
  - CREPITATIONS [None]
  - DISEASE PROGRESSION [None]
  - ECCHYMOSIS [None]
  - HYPERGLOBULINAEMIA [None]
  - IMMOBILIZATION PROLONGED [None]
  - MUSCLE SPASMS [None]
  - NEUROPATHY PERIPHERAL [None]
  - PANCYTOPENIA [None]
  - PARAESTHESIA [None]
  - RENAL FAILURE [None]
  - URINARY TRACT INFECTION [None]
  - UROSEPSIS [None]
